FAERS Safety Report 9296944 (Version 1)
Quarter: 2013Q2

REPORT INFORMATION
  Report Type: Report from Study
  Country: DE (occurrence: DE)
  Receive Date: 20130518
  Receipt Date: 20130518
  Transmission Date: 20140414
  Serious: Yes (Death)
  Sender: FDA-Public Use
  Company Number: DE-ROCHE-1225907

PATIENT
  Sex: Female

DRUGS (2)
  1. VEMURAFENIB [Suspect]
     Indication: NEOPLASM MALIGNANT
     Route: 065
     Dates: start: 201208
  2. TEMOZOLOMID [Concomitant]
     Indication: NEOPLASM MALIGNANT
     Route: 065
     Dates: start: 201210

REACTIONS (2)
  - Neoplasm malignant [Fatal]
  - Metastases to meninges [Unknown]
